FAERS Safety Report 5524409-8 (Version None)
Quarter: 2007Q4

REPORT INFORMATION
  Report Type: 
  Country: None (occurrence: None)
  Receive Date: 20071121
  Receipt Date: 20071110
  Transmission Date: 20080405
  Serious: Yes (Other)
  Sender: FDA-Public Use
  Company Number: US-PFIZER INC-2007096986

PATIENT
  Sex: Female
  Weight: 68.181 kg

DRUGS (8)
  1. CHANTIX [Suspect]
     Indication: SMOKING CESSATION THERAPY
     Dosage: TEXT:1MG BID EVERY DAY TDD:2MG
  2. MECLIZINE [Suspect]
     Indication: DIZZINESS
  3. ALL OTHER THERAPEUTIC PRODUCTS [Suspect]
  4. ALLEGRA D 24 HOUR [Concomitant]
  5. RANITIDINE HCL [Concomitant]
     Dosage: DAILY DOSE:300
  6. CITALOPRAM [Concomitant]
     Dosage: DAILY DOSE:20MG
  7. ALL OTHER THERAPEUTIC PRODUCTS [Concomitant]
  8. ONE-A-DAY [Concomitant]

REACTIONS (10)
  - APATHY [None]
  - DAYDREAMING [None]
  - DEPRESSION [None]
  - DISSOCIATION [None]
  - DIZZINESS [None]
  - FEELING ABNORMAL [None]
  - IMPAIRED WORK ABILITY [None]
  - MENTAL IMPAIRMENT [None]
  - THERAPY REGIMEN CHANGED [None]
  - TREMOR [None]
